FAERS Safety Report 11440034 (Version 1)
Quarter: 2015Q3

REPORT INFORMATION
  Report Type: Spontaneous
  Country: US (occurrence: US)
  Receive Date: 20150901
  Receipt Date: 20150901
  Transmission Date: 20151125
  Serious: Yes (Other)
  Sender: FDA-Public Use
  Company Number: US-ROCHE-1079800

PATIENT
  Sex: Male

DRUGS (2)
  1. PEGASYS [Suspect]
     Active Substance: PEGINTERFERON ALFA-2A
     Indication: CHRONIC HEPATITIS C
     Route: 058
     Dates: start: 20120606
  2. RIBAVIRIN (NON-ROCHE/NON-COMPARATOR) [Suspect]
     Active Substance: RIBAVIRIN
     Indication: CHRONIC HEPATITIS C
     Dosage: BRAND FROM ZYDUS
     Route: 048
     Dates: start: 20120606

REACTIONS (9)
  - Myalgia [Unknown]
  - Insomnia [Unknown]
  - Homicidal ideation [Unknown]
  - Temperature intolerance [Unknown]
  - Nausea [Unknown]
  - Back pain [Unknown]
  - Pyrexia [Unknown]
  - Chills [Unknown]
  - Vertebral osteophyte [Unknown]
